FAERS Safety Report 9342465 (Version 4)
Quarter: 2013Q4

REPORT INFORMATION
  Report Type: Report from Study
  Country: FR (occurrence: FR)
  Receive Date: 20130611
  Receipt Date: 20131016
  Transmission Date: 20140711
  Serious: Yes (Hospitalization, Disabling)
  Sender: FDA-Public Use
  Company Number: PHHY2013FR058845

PATIENT
  Age: 75 Year
  Sex: Male

DRUGS (2)
  1. TASIGNA [Suspect]
     Indication: CHRONIC MYELOID LEUKAEMIA
     Route: 048
     Dates: start: 20081228, end: 20090301
  2. TASIGNA [Suspect]
     Dosage: UNK
     Dates: start: 200909

REACTIONS (1)
  - Diabetic neuropathy [Unknown]
